FAERS Safety Report 9617841 (Version 1)
Quarter: 2013Q4

REPORT INFORMATION
  Report Type: Spontaneous
  Country: FI (occurrence: FI)
  Receive Date: 20131011
  Receipt Date: 20131011
  Transmission Date: 20140711
  Serious: Yes (Hospitalization)
  Sender: FDA-Public Use
  Company Number: FI-ABBVIE-12P-055-0972723-00

PATIENT
  Age: 23 Year
  Sex: Female
  Weight: 45 kg

DRUGS (4)
  1. HUMIRA [Suspect]
     Indication: CROHN^S DISEASE
     Dates: start: 20120516, end: 20120516
  2. HUMIRA [Suspect]
     Dates: start: 20120530, end: 20120530
  3. HUMIRA [Suspect]
     Dates: start: 201206
  4. HUMIRA [Suspect]
     Dates: start: 20120705

REACTIONS (2)
  - Diarrhoea [Unknown]
  - Herpes simplex meningitis [Unknown]
